FAERS Safety Report 17810203 (Version 1)
Quarter: 2020Q2

REPORT INFORMATION
  Report Type: Spontaneous
  Country: US (occurrence: US)
  Receive Date: 20200521
  Receipt Date: 20200521
  Transmission Date: 20200714
  Serious: No
  Sender: FDA-Public Use
  Company Number: US-TEVA-2020-US-1239163

PATIENT
  Sex: Female

DRUGS (12)
  1. AMANTADINE HCL 100 MG CAPSULE [Concomitant]
  2. AUSTEDO [Suspect]
     Active Substance: DEUTETRABENAZINE
     Indication: TARDIVE DYSKINESIA
     Dosage: 36 MILLIGRAM DAILY;
     Dates: start: 201907
  3. MELOXICAM 7.5 MG TABLET [Concomitant]
     Active Substance: MELOXICAM
  4. ATORVASTATIN CALCIUM 10 MG TABLET [Concomitant]
  5. POTASSIUM 595(99)MG TABLET [Concomitant]
  6. OMEPRAZOLE 20 MG TABLET DR [Concomitant]
  7. LOSARTAN-HYDROCHLOROTHIAZIDE [Concomitant]
     Active Substance: HYDROCHLOROTHIAZIDE\LOSARTAN
  8. GABAPENTIN 100 MG CAPSULE [Concomitant]
  9. ISOSORBIDE MONONITRATE. [Concomitant]
     Active Substance: ISOSORBIDE MONONITRATE
  10. FLUOXETINE HCL 10 MG TABLET [Concomitant]
     Active Substance: FLUOXETINE HYDROCHLORIDE
  11. AMLODIPINE BESYLATE 10 MG TABLET [Concomitant]
     Active Substance: AMLODIPINE BESYLATE
  12. CLONAZEPAM 0.5 MG TABLET [Concomitant]
     Active Substance: CLONAZEPAM

REACTIONS (2)
  - Bedridden [Unknown]
  - Back pain [Unknown]
